FAERS Safety Report 17696689 (Version 1)
Quarter: 2020Q2

REPORT INFORMATION
  Report Type: Spontaneous
  Country: US (occurrence: US)
  Receive Date: 20200423
  Receipt Date: 20200423
  Transmission Date: 20200714
  Serious: Yes (Other)
  Sender: FDA-Public Use
  Company Number: US-ABBVIE-20K-163-3369519-00

PATIENT

DRUGS (2)
  1. HUMIRA [Suspect]
     Active Substance: ADALIMUMAB
     Indication: PRODUCT USED FOR UNKNOWN INDICATION
     Route: 058
  2. XELJANZ [Suspect]
     Active Substance: TOFACITINIB CITRATE
     Indication: RHEUMATOID ARTHRITIS
     Route: 048
     Dates: start: 20200121

REACTIONS (6)
  - Depressed mood [Unknown]
  - Dizziness [Unknown]
  - Headache [Unknown]
  - Tachycardia [Unknown]
  - Diplopia [Unknown]
  - Vertigo [Unknown]

NARRATIVE: CASE EVENT DATE: 2020
